FAERS Safety Report 9515551 (Version 1)
Quarter: 2013Q1

REPORT INFORMATION
  Report Type: Spontaneous
  Country: US (occurrence: None)
  Receive Date: 20130305
  Receipt Date: 20130305
  Transmission Date: 20140127
  Serious: Yes (Other)
  Sender: FDA-Public Use
  Company Number: 163-21880-12121541

PATIENT
  Age: 65 Year
  Sex: Female

DRUGS (7)
  1. REVLIMID [Suspect]
     Indication: PLASMA CELL MYELOMA
     Dosage: 21 IN 21 D
     Route: 048
     Dates: start: 20120129
  2. CIPROFLOXACIN HCL (CIPROFLOXACIN HYDROCHLORIDE) (UNKNOWN) [Concomitant]
     Dosage: 21 IN 21 D
     Route: 048
     Dates: start: 20120129
  3. CALTRATE 600 + D(CALCITE D) (UNKNOWN) [Concomitant]
  4. ALLEGRA ALLERGY (FEXOFENADINE HYDROCHLORIDE) (UNKNOWN) [Concomitant]
  5. ASPIRIN (ACETYLSALICYLIC ACID) (UNKNOWN) (ACETYLSALICYLIC ACID) [Concomitant]
  6. NEXIUM (ESOMEPRAZOLE) (UNKNOWN) [Concomitant]
  7. METOPROLOL TARTRATE (METOPROLOL TARTRATE) (UNKNOWN) [Concomitant]

REACTIONS (1)
  - Rash [None]
